FAERS Safety Report 7700418-5 (Version None)
Quarter: 2011Q3

REPORT INFORMATION
  Report Type: 
  Country: None (occurrence: None)
  Receive Date: 20110822
  Receipt Date: 20110808
  Transmission Date: 20111222
  Serious: Yes (Hospitalization, Other)
  Sender: FDA-Public Use
  Company Number: ES-ELI_LILLY_AND_COMPANY-ES201108002681

PATIENT
  Sex: Female
  Weight: 80 kg

DRUGS (11)
  1. ATORVASTATIN [Concomitant]
     Indication: CARDIAC DISORDER
     Dosage: 40 MG, QD
  2. VENLAFAXINE HCL [Concomitant]
     Indication: DEPRESSION
     Dosage: 75 MG, BID
     Route: 048
  3. MOLSIDAIN [Concomitant]
     Indication: CARDIAC DISORDER
     Dosage: 4 MG, TID
     Route: 048
  4. CLORAZEPATE DIPOTASSIUM [Concomitant]
     Indication: DEPRESSION
     Dosage: 5 MG, QD
     Route: 048
  5. FORTEO [Suspect]
     Indication: OSTEOPOROSIS
     Dosage: 20 UG, QD
     Route: 058
     Dates: start: 20100201
  6. PHENOBARBITAL TAB [Concomitant]
     Indication: EPILEPSY
     Dosage: UNK, QD
     Route: 048
  7. PANTOPRAZOLE [Concomitant]
     Indication: GASTRIC DISORDER
     Dosage: 40 MG, QD
     Route: 048
  8. BISOPROLOL FUMARATE [Concomitant]
     Indication: CARDIAC DISORDER
     Dosage: 5 MG, BID
     Route: 048
  9. NITROGLYCERIN [Concomitant]
     Dosage: 5 MG, QD
     Route: 061
  10. NOLOTIL [Concomitant]
     Indication: PAIN
     Dosage: UNK, PRN
     Route: 048
  11. SINTROM [Concomitant]
     Indication: ANTICOAGULANT THERAPY
     Dosage: UNK, PRN
     Route: 048

REACTIONS (1)
  - CEREBROVASCULAR ACCIDENT [None]
